FAERS Safety Report 6713087-8 (Version None)
Quarter: 2010Q2

REPORT INFORMATION
  Report Type: 
  Country: None (occurrence: None)
  Receive Date: 20100506
  Receipt Date: 20100426
  Transmission Date: 20101027
  Serious: Yes (Disabling, Other)
  Sender: FDA-Public Use
  Company Number: US-BAYER-201020625NA

PATIENT
  Sex: Female

DRUGS (2)
  1. CIPROFLOXACIN [Suspect]
     Indication: DRUG USE FOR UNKNOWN INDICATION
     Dates: start: 20090101
  2. CIPROFLOXACIN [Suspect]
     Dates: end: 20100401

REACTIONS (5)
  - ABASIA [None]
  - GAIT DISTURBANCE [None]
  - MOBILITY DECREASED [None]
  - PAIN IN EXTREMITY [None]
  - TENDON RUPTURE [None]
